FAERS Safety Report 14980872 (Version 1)
Quarter: 2018Q2

REPORT INFORMATION
  Report Type: Spontaneous
  Country: US (occurrence: US)
  Receive Date: 20180515
  Receipt Date: 20180515
  Transmission Date: 20180711
  Serious: Yes (Disabling)
  Sender: FDA-Public Use
  Company Number: None

PATIENT
  Age: 52 Year
  Sex: Male
  Weight: 97.52 kg

DRUGS (9)
  1. DEPAKOTE IR [Concomitant]
  2. POTASSIUM CL ER [Concomitant]
     Active Substance: POTASSIUM CHLORIDE
  3. FOLIC ACID. [Concomitant]
     Active Substance: FOLIC ACID
  4. DEXTROAMPHET SACCHARAT, AMPHET ASPARTATE, DEXTROAMPHET SULFATE AND AMPHET SULFAT [Suspect]
     Active Substance: AMPHETAMINE ASPARTATE\AMPHETAMINE SULFATE\DEXTROAMPHETAMINE SACCHARATE\DEXTROAMPHETAMINE SULFATE
     Indication: ATTENTION DEFICIT/HYPERACTIVITY DISORDER
     Dosage: ?          QUANTITY:12 DF DOSAGE FORM;?
     Route: 048
     Dates: start: 20180425, end: 20180430
  5. HYDROCHLOROTHIAZIDE. [Concomitant]
     Active Substance: HYDROCHLOROTHIAZIDE
  6. ELIDEL 1% [Concomitant]
  7. TEMAZEPAM. [Concomitant]
     Active Substance: TEMAZEPAM
  8. GABA-KETO-LIDO 6-10-10 IN PLO TOP GEL [Concomitant]
  9. VITAMIN D2 [Concomitant]
     Active Substance: ERGOCALCIFEROL

REACTIONS (9)
  - Product sterility lacking [None]
  - Product substitution issue [None]
  - Dizziness [None]
  - Product quality issue [None]
  - Drug effect decreased [None]
  - Disturbance in attention [None]
  - Drug ineffective [None]
  - Impaired driving ability [None]
  - Thinking abnormal [None]

NARRATIVE: CASE EVENT DATE: 20180425
